FAERS Safety Report 7653269 (Version 5)
Quarter: 2013Q1

REPORT INFORMATION
  Report Type: Spontaneous
  Country: US (occurrence: US)
  Receive Date: 20101102
  Receipt Date: 20130306
  Transmission Date: 20140127
  Serious: Yes (Hospitalization, Other)
  Sender: FDA-Public Use
  Company Number: US-ELI_LILLY_AND_COMPANY-US201010005935

PATIENT
  Sex: Male
  Weight: 127.44 kg

DRUGS (17)
  1. BYETTA [Suspect]
     Indication: TYPE 2 DIABETES MELLITUS
     Dosage: 5 UG, BID
     Dates: start: 2008
  2. BYETTA [Suspect]
     Dosage: 10 UG, BID
     Route: 058
     Dates: end: 201010
  3. BYETTA [Suspect]
     Dosage: 5 UG, BID
     Dates: end: 20120523
  4. BYETTA [Suspect]
     Dosage: 10 UG, BID
     Route: 058
     Dates: start: 2012, end: 201208
  5. METFORMIN [Concomitant]
     Indication: TYPE 2 DIABETES MELLITUS
     Dosage: UNK
  6. GLIMEPIRIDE [Concomitant]
     Indication: TYPE 2 DIABETES MELLITUS
     Dosage: UNK
  7. LEVOTHYROXINE [Concomitant]
     Indication: THYROIDECTOMY
     Dosage: 200 UG, QD
     Route: 048
  8. FUROSEMIDE [Concomitant]
     Indication: SWELLING
     Dosage: 40 MG, BID
     Route: 048
  9. DILTIAZEM [Concomitant]
     Indication: BLOOD PRESSURE INCREASED
     Dosage: 360 MG, QD
  10. TERAZOSIN [Concomitant]
     Indication: BLOOD PRESSURE INCREASED
     Dosage: 2 MG, QD
     Route: 048
  11. MICARDIS [Concomitant]
     Indication: BLOOD PRESSURE INCREASED
     Dosage: UNK, QD
     Route: 048
  12. PRAVASTATIN [Concomitant]
     Indication: BLOOD CHOLESTEROL INCREASED
     Dosage: UNK, QD
     Route: 048
  13. OXYCODONE [Concomitant]
     Indication: PAIN
     Dosage: UNK
  14. TRAMADOL [Concomitant]
     Indication: PAIN
     Dosage: UNK
  15. TYLENOL                                 /SCH/ [Concomitant]
     Indication: PAIN
     Dosage: UNK
  16. IBUPROFEN [Concomitant]
     Indication: PAIN
     Dosage: UNK
  17. LASIX                                   /USA/ [Concomitant]
     Indication: VENOUS INSUFFICIENCY
     Dosage: 40 MG, QD
     Route: 048

REACTIONS (24)
  - Thyroid cancer [Unknown]
  - Palpitations [Recovered/Resolved]
  - Presyncope [Recovered/Resolved]
  - Injury associated with device [Recovered/Resolved]
  - Neck deformity [Recovered/Resolved]
  - Dysphagia [Recovered/Resolved]
  - Blood pressure increased [Not Recovered/Not Resolved]
  - Local swelling [Not Recovered/Not Resolved]
  - Fluid retention [Not Recovered/Not Resolved]
  - Blood glucose increased [Recovered/Resolved]
  - Tunnel vision [Recovering/Resolving]
  - Lethargy [Unknown]
  - Blood glucose decreased [Recovered/Resolved]
  - Weight fluctuation [Not Recovered/Not Resolved]
  - Malaise [Unknown]
  - Stress [Unknown]
  - Feeling hot [Unknown]
  - Hypoacusis [Unknown]
  - Fatigue [Unknown]
  - Tremor [Recovering/Resolving]
  - Nausea [Recovered/Resolved]
  - Vomiting [Recovered/Resolved]
  - Dizziness [Unknown]
  - Asthenia [Unknown]
